FAERS Safety Report 20802189 (Version 2)
Quarter: 2022Q2

REPORT INFORMATION
  Report Type: Report from Study
  Country: PL (occurrence: PL)
  Receive Date: 20220509
  Receipt Date: 20220627
  Transmission Date: 20220721
  Serious: Yes (Hospitalization, Other)
  Sender: FDA-Public Use
  Company Number: PL-CELGENE-POL-20210902860

PATIENT
  Age: 71 Year
  Sex: Male

DRUGS (77)
  1. AZACITIDINE [Suspect]
     Active Substance: AZACITIDINE
     Indication: Acute myeloid leukaemia
     Route: 042
     Dates: start: 20210726
  2. AZACITIDINE [Suspect]
     Active Substance: AZACITIDINE
     Dates: start: 20210831
  3. PEVONEDISTAT [Suspect]
     Active Substance: PEVONEDISTAT
     Indication: Acute myeloid leukaemia
     Dates: start: 20210726
  4. PEVONEDISTAT [Suspect]
     Active Substance: PEVONEDISTAT
     Dates: start: 20210831
  5. VENETOCLAX [Suspect]
     Active Substance: VENETOCLAX
     Indication: Acute myeloid leukaemia
     Dates: start: 20210726
  6. VENETOCLAX [Suspect]
     Active Substance: VENETOCLAX
     Dosage: DURATION :1 MONTH 5 DAYS
     Dates: start: 20210727
  7. VENETOCLAX [Suspect]
     Active Substance: VENETOCLAX
     Dates: start: 20210728
  8. VENETOCLAX [Suspect]
     Active Substance: VENETOCLAX
     Dates: start: 20210813
  9. VENETOCLAX [Suspect]
     Active Substance: VENETOCLAX
     Dates: start: 20210908, end: 20210912
  10. VENETOCLAX [Suspect]
     Active Substance: VENETOCLAX
     Dates: start: 20211018, end: 20211026
  11. VENETOCLAX [Suspect]
     Active Substance: VENETOCLAX
     Dates: start: 20211027
  12. SODIUM CHLORIDE [Concomitant]
     Active Substance: SODIUM CHLORIDE
     Dates: start: 20210723
  13. SODIUM CHLORIDE [Concomitant]
     Active Substance: SODIUM CHLORIDE
  14. NADROPARIN CALCIUM [Concomitant]
     Active Substance: NADROPARIN CALCIUM
     Dates: start: 20210723
  15. NADROPARIN CALCIUM [Concomitant]
     Active Substance: NADROPARIN CALCIUM
  16. ALLOPURINOL [Concomitant]
     Active Substance: ALLOPURINOL
     Dosage: FREQUENCY TEXT: NOT PROVIDED
     Route: 065
     Dates: start: 20210723
  17. ALLOPURINOL [Concomitant]
     Active Substance: ALLOPURINOL
     Indication: Product used for unknown indication
  18. ONDANSETRON [Concomitant]
     Active Substance: ONDANSETRON
     Dates: start: 20210726
  19. ONDANSETRON [Concomitant]
     Active Substance: ONDANSETRON
  20. TRAMADOL HYDROCHLORIDE [Concomitant]
     Active Substance: TRAMADOL HYDROCHLORIDE
     Dates: start: 20210726, end: 20210812
  21. LINEZOLID [Concomitant]
     Active Substance: LINEZOLID
     Dosage: FREQUENCY TEXT: NOT PROVIDED
     Route: 065
     Dates: start: 20210726, end: 20210812
  22. LINEZOLID [Concomitant]
     Active Substance: LINEZOLID
     Indication: Product used for unknown indication
  23. FENOTEROL HYDROBROMIDE\IPRATROPIUM BROMIDE [Concomitant]
     Active Substance: FENOTEROL HYDROBROMIDE\IPRATROPIUM BROMIDE
     Dates: start: 20210728
  24. FENOTEROL HYDROBROMIDE\IPRATROPIUM BROMIDE [Concomitant]
     Active Substance: FENOTEROL HYDROBROMIDE\IPRATROPIUM BROMIDE
  25. ALBUMIN HUMAN [Concomitant]
     Active Substance: ALBUMIN HUMAN
     Dates: start: 20210729
  26. ALBUMIN HUMAN [Concomitant]
     Active Substance: ALBUMIN HUMAN
  27. ALBUMIN HUMAN [Concomitant]
     Active Substance: ALBUMIN HUMAN
  28. ALBUMIN HUMAN [Concomitant]
     Active Substance: ALBUMIN HUMAN
  29. ALBUMIN HUMAN [Concomitant]
     Active Substance: ALBUMIN HUMAN
  30. ALBUMIN HUMAN [Concomitant]
     Active Substance: ALBUMIN HUMAN
  31. ALBUMIN HUMAN [Concomitant]
     Active Substance: ALBUMIN HUMAN
  32. ALBUMIN HUMAN [Concomitant]
     Active Substance: ALBUMIN HUMAN
  33. ALBUMIN HUMAN [Concomitant]
     Active Substance: ALBUMIN HUMAN
  34. ALBUMIN HUMAN [Concomitant]
     Active Substance: ALBUMIN HUMAN
  35. ALBUMIN HUMAN [Concomitant]
     Active Substance: ALBUMIN HUMAN
  36. ALBUMIN HUMAN [Concomitant]
     Active Substance: ALBUMIN HUMAN
  37. ALBUMIN HUMAN [Concomitant]
     Active Substance: ALBUMIN HUMAN
  38. ALBUMIN HUMAN [Concomitant]
     Active Substance: ALBUMIN HUMAN
  39. ALBUMIN HUMAN [Concomitant]
     Active Substance: ALBUMIN HUMAN
  40. ALBUMIN HUMAN [Concomitant]
     Active Substance: ALBUMIN HUMAN
  41. ALBUMIN HUMAN [Concomitant]
     Active Substance: ALBUMIN HUMAN
  42. PANTOPRAZOLE [Concomitant]
     Active Substance: PANTOPRAZOLE
     Dosage: FREQUENCY TEXT: NOT PROVIDED
     Route: 065
     Dates: start: 20210707, end: 20210723
  43. PANTOPRAZOLE [Concomitant]
     Active Substance: PANTOPRAZOLE
     Indication: Gastrooesophageal reflux disease
  44. LEVOFLOXACIN [Concomitant]
     Active Substance: LEVOFLOXACIN
     Dates: start: 20210719
  45. LEVOFLOXACIN [Concomitant]
     Active Substance: LEVOFLOXACIN
  46. MEROPENEM [Concomitant]
     Active Substance: MEROPENEM
  47. MEROPENEM [Concomitant]
     Active Substance: MEROPENEM
     Indication: Product used for unknown indication
     Dosage: FREQUENCY TEXT: NOT PROVIDED
     Route: 065
     Dates: start: 20210726, end: 20210812
  48. CASPOFUNGIN [Concomitant]
     Active Substance: CASPOFUNGIN
  49. HYDROXYUREA [Concomitant]
     Active Substance: HYDROXYUREA
  50. ACYCLOVIR [Concomitant]
     Active Substance: ACYCLOVIR
  51. FUROSEMIDE [Concomitant]
     Active Substance: FUROSEMIDE
  52. LEVOFLOXACIN HEMIHYDRATE [Concomitant]
     Active Substance: LEVOFLOXACIN
     Indication: Product used for unknown indication
     Dosage: FREQUENCY TEXT: NOT PROVIDED
     Route: 065
     Dates: start: 20210719, end: 20210827
  53. FLUCONAZOLE [Concomitant]
     Active Substance: FLUCONAZOLE
     Indication: Infection prophylaxis
     Dosage: FREQUENCY TEXT: NOT PROVIDED
     Route: 065
     Dates: start: 20210719
  54. ALFACALCIDOL [Concomitant]
     Active Substance: ALFACALCIDOL
     Indication: Nutritional supplementation
     Dosage: FREQUENCY TEXT: NOT PROVIDED
     Route: 065
     Dates: start: 20210728
  55. ALFACALCIDOL [Concomitant]
     Active Substance: ALFACALCIDOL
     Dates: start: 20210813
  56. FENOTEROL HYDROBROMIDE [Concomitant]
     Active Substance: FENOTEROL HYDROBROMIDE
     Indication: Product used for unknown indication
     Dosage: FREQUENCY TEXT: NOT PROVIDED
     Route: 065
     Dates: start: 20210728, end: 20210812
  57. IPRATROPIUM BROMIDE [Concomitant]
     Active Substance: IPRATROPIUM BROMIDE
     Indication: Product used for unknown indication
     Dosage: FREQUENCY TEXT: NOT PROVIDED
     Route: 065
     Dates: start: 20210728, end: 20210812
  58. AMOXICILLIN TRIHYDRATE [Concomitant]
     Active Substance: AMOXICILLIN
     Indication: Pneumonia
     Dosage: FREQUENCY TEXT: NOT PROVIDED
     Route: 065
     Dates: start: 20210813, end: 20210816
  59. TORSEMIDE [Concomitant]
     Active Substance: TORSEMIDE
     Indication: Prophylaxis
     Dosage: FREQUENCY TEXT: NOT PROVIDED
     Route: 065
     Dates: start: 20210813
  60. NADROPARIN CALCIUM [Concomitant]
     Active Substance: NADROPARIN CALCIUM
     Indication: Thrombosis prophylaxis
     Dosage: FREQUENCY TEXT: NOT PROVIDED
     Route: 065
     Dates: start: 20210723, end: 20210812
  61. ENTECAVIR [Concomitant]
     Active Substance: ENTECAVIR
     Indication: Thrombosis prophylaxis
     Dosage: FREQUENCY TEXT: NOT PROVIDED
     Route: 065
     Dates: start: 20210805
  62. LACTULOSE [Concomitant]
     Active Substance: LACTULOSE
     Indication: Constipation
     Dosage: FREQUENCY TEXT: NOT PROVIDED
     Route: 065
     Dates: start: 20210824, end: 20210825
  63. ENOXAPARIN SODIUM [Concomitant]
     Active Substance: ENOXAPARIN SODIUM
     Indication: Prophylaxis
     Dosage: FREQUENCY TEXT: NOT PROVIDED
     Route: 065
     Dates: start: 20210826
  64. PIPERACILLIN SODIUM\TAZOBACTAM SODIUM [Concomitant]
     Active Substance: PIPERACILLIN SODIUM\TAZOBACTAM SODIUM
     Indication: C-reactive protein increased
     Dosage: FREQUENCY TEXT: NOT PROVIDED
     Route: 065
     Dates: start: 20210827, end: 20210831
  65. DROTAVERINE HYDROCHLORIDE [Concomitant]
     Active Substance: DROTAVERINE HYDROCHLORIDE
     Indication: Abdominal pain
     Dosage: FREQUENCY TEXT: NOT PROVIDED
     Route: 065
     Dates: start: 20210830, end: 20210830
  66. ACETAMINOPHEN [Concomitant]
     Active Substance: ACETAMINOPHEN
     Indication: Abdominal pain
     Dosage: FREQUENCY TEXT: NOT PROVIDED
     Route: 065
     Dates: start: 20210830, end: 20210830
  67. CAPTOPRIL [Concomitant]
     Active Substance: CAPTOPRIL
     Indication: Blood pressure increased
     Dosage: FREQUENCY TEXT: NOT PROVIDED
     Route: 065
     Dates: start: 20210830, end: 20210830
  68. FILGRASTIM [Concomitant]
     Active Substance: FILGRASTIM
     Indication: Pneumonia
     Dosage: FREQUENCY TEXT: NOT PROVIDED
     Route: 065
     Dates: start: 20210917
  69. CEFTRIAXONE SODIUM [Concomitant]
     Active Substance: CEFTRIAXONE SODIUM
     Indication: Product used for unknown indication
     Dosage: FREQUENCY TEXT: NOT PROVIDED
     Route: 065
  70. CALCIUM GLUCONATE [Concomitant]
     Active Substance: CALCIUM GLUCONATE
     Indication: Product used for unknown indication
     Dosage: FREQUENCY TEXT: NOT PROVIDED
     Route: 065
     Dates: start: 20210726, end: 20210812
  71. MAGNESIUM CARBONATE [Concomitant]
     Active Substance: MAGNESIUM CARBONATE
     Indication: Product used for unknown indication
     Dosage: FREQUENCY TEXT: NOT PROVIDED
     Route: 065
     Dates: start: 20210726, end: 20210812
  72. POTASSIUM CHLORIDE [Concomitant]
     Active Substance: POTASSIUM CHLORIDE
     Indication: Product used for unknown indication
     Dosage: FREQUENCY TEXT: NOT PROVIDED
     Route: 065
     Dates: start: 20210726, end: 20210812
  73. HYDROXYUREA [Concomitant]
     Active Substance: HYDROXYUREA
     Indication: Acute myeloid leukaemia
     Dosage: FREQUENCY TEXT: NOT PROVIDED
     Route: 065
     Dates: start: 20210719, end: 20210725
  74. SMOFKABIVEN PERIFER [Concomitant]
     Indication: Prophylaxis
     Dosage: FREQUENCY TEXT: NOT PROVIDED
     Route: 065
     Dates: start: 2021, end: 20211123
  75. ENOXAPARIN SODIUM [Concomitant]
     Active Substance: ENOXAPARIN SODIUM
     Indication: Prophylaxis
     Dates: start: 20210826, end: 20211003
  76. SODIUM BICARBONATE [Concomitant]
     Active Substance: SODIUM BICARBONATE
     Indication: Prophylaxis
     Dates: start: 20210726, end: 20210812
  77. ACETAMINOPHEN\TRAMADOL HYDROCHLORIDE [Concomitant]
     Active Substance: ACETAMINOPHEN\TRAMADOL HYDROCHLORIDE
     Indication: Pneumonia
     Dates: start: 20210728, end: 20210729

REACTIONS (1)
  - Staphylococcal bacteraemia [Recovered/Resolved]

NARRATIVE: CASE EVENT DATE: 20210827
